FAERS Safety Report 25863431 (Version 1)
Quarter: 2025Q3

REPORT INFORMATION
  Report Type: Spontaneous
  Country: EU (occurrence: EU)
  Receive Date: 20250930
  Receipt Date: 20250930
  Transmission Date: 20251020
  Serious: Yes (Other)
  Sender: RANBAXY
  Company Number: EU-SUN PHARMACEUTICAL INDUSTRIES INC-2025R1-529307

PATIENT
  Age: 41 Year
  Sex: Female

DRUGS (1)
  1. DOXYCYCLINE [Suspect]
     Active Substance: DOXYCYCLINE
     Indication: Skin toxicity
     Dosage: 100 MILLIGRAM, BID
     Route: 048

REACTIONS (3)
  - Nausea [Unknown]
  - Dyspepsia [Unknown]
  - Condition aggravated [Unknown]
